FAERS Safety Report 6552873-4 (Version None)
Quarter: 2010Q1

REPORT INFORMATION
  Report Type: 
  Country: None (occurrence: None)
  Receive Date: 20100122
  Receipt Date: 20100111
  Transmission Date: 20100710
  Serious: Yes (Life-Threatening, Hospitalization, Other)
  Sender: FDA-Public Use
  Company Number: A-CH2009-30902

PATIENT
  Age: 52 Year
  Sex: Female
  Weight: 71 kg

DRUGS (6)
  1. TRACLEER [Suspect]
     Indication: SKIN ULCER
     Dosage: 125 MG, BID, ORAL; 125 MG, OD, ORAL
     Route: 048
     Dates: start: 20090803, end: 20090830
  2. TRACLEER [Suspect]
     Indication: SKIN ULCER
     Dosage: 125 MG, BID, ORAL; 125 MG, OD, ORAL
     Route: 048
     Dates: start: 20090831, end: 20091206
  3. AGAPURIN (PENTOXIFYLLINE) [Concomitant]
  4. ANOPYRIN (ACETYLSALICYLIC ACID) [Concomitant]
  5. VITAMIN E [Concomitant]
  6. LAGOSA (SILYBUM MARIANUM) [Concomitant]

REACTIONS (4)
  - ALANINE AMINOTRANSFERASE INCREASED [None]
  - ASPARTATE AMINOTRANSFERASE INCREASED [None]
  - BLOOD ALKALINE PHOSPHATASE INCREASED [None]
  - BREAST CANCER FEMALE [None]
